FAERS Safety Report 7934155-9 (Version None)
Quarter: 2011Q4

REPORT INFORMATION
  Report Type: 
  Country: None (occurrence: None)
  Receive Date: 20111122
  Receipt Date: 20111104
  Transmission Date: 20120403
  Serious: Yes (Hospitalization)
  Sender: FDA-Public Use
  Company Number: FR-VERTEX PHARMACEUTICALS INC.-AE-2011-002602

PATIENT
  Sex: Female
  Weight: 73 kg

DRUGS (12)
  1. VX-950 [Suspect]
     Indication: HEPATITIS C
     Route: 048
     Dates: start: 20110808, end: 20111102
  2. COPEGUS [Concomitant]
     Indication: HEPATITIS C
     Route: 048
     Dates: start: 20110712
  3. MS CONTIN [Concomitant]
     Route: 048
  4. REYATAZ [Concomitant]
     Indication: HIV INFECTION
     Route: 048
     Dates: start: 20070716
  5. OXAZEPAM [Concomitant]
     Indication: PRODUCT USED FOR UNKNOWN INDICATION
     Route: 048
     Dates: start: 20091203
  6. PEGASYS [Concomitant]
     Indication: HEPATITIS C
     Route: 058
     Dates: start: 20110712
  7. NEORECORMON [Concomitant]
     Indication: HAEMOGLOBIN DECREASED
     Dates: start: 20111004
  8. MS CONTIN [Concomitant]
     Indication: PRODUCT USED FOR UNKNOWN INDICATION
     Route: 048
     Dates: start: 20100618
  9. OXAZEPAM [Concomitant]
     Route: 048
  10. LEVOTHYROXINE SODIUM [Concomitant]
     Dates: start: 20110308
  11. TRUVADA [Concomitant]
     Indication: HIV INFECTION
     Route: 048
     Dates: start: 20070716
  12. ESCITALOPRAM OXALATE [Concomitant]
     Dates: start: 20100112

REACTIONS (8)
  - OVERDOSE [None]
  - HEPATIC FAILURE [None]
  - DRUG WITHDRAWAL CONVULSIONS [None]
  - WITHDRAWAL SYNDROME [None]
  - DRUG INTERACTION [None]
  - RESPIRATORY FAILURE [None]
  - ALTERED STATE OF CONSCIOUSNESS [None]
  - MALAISE [None]
